FAERS Safety Report 12110748 (Version 3)
Quarter: 2016Q1

REPORT INFORMATION
  Report Type: Spontaneous
  Country: IT (occurrence: IT)
  Receive Date: 20160224
  Receipt Date: 20160331
  Transmission Date: 20160526
  Serious: Yes (Death, Life-Threatening, Hospitalization, Other)
  Sender: FDA-Public Use
  Company Number: IT-GILEAD-2016-0199712

PATIENT
  Age: 76 Year
  Sex: Female
  Weight: 54 kg

DRUGS (9)
  1. LANGAST [Concomitant]
     Dosage: 1 DF, QD
  2. SINTROM [Concomitant]
     Active Substance: ACENOCOUMAROL
     Dosage: UNK
     Dates: end: 20160201
  3. EPREX [Concomitant]
     Active Substance: ERYTHROPOIETIN
     Dosage: 1 DF, Q1WK
     Route: 058
     Dates: start: 20151210
  4. SOVALDI [Suspect]
     Active Substance: SOFOSBUVIR
     Indication: CHRONIC HEPATITIS C
     Dosage: 400 MG, QD
     Route: 048
     Dates: start: 20151202, end: 20160202
  5. RIBAVIRIN. [Suspect]
     Active Substance: RIBAVIRIN
     Indication: CHRONIC HEPATITIS C
     Dosage: 400 MG, BID
     Route: 048
     Dates: start: 20151202, end: 20160202
  6. LEVOPRAID                          /00314301/ [Concomitant]
     Active Substance: SULPIRIDE
  7. EUTIROX [Concomitant]
     Active Substance: LEVOTHYROXINE SODIUM
     Dosage: 1 DF, QD
  8. CONGESCOR [Concomitant]
     Active Substance: BISOPROLOL
     Dosage: 1 DF, QD
  9. AMARYL [Concomitant]
     Active Substance: GLIMEPIRIDE
     Dosage: 0.5 DF, BID

REACTIONS (6)
  - Transient ischaemic attack [Recovered/Resolved]
  - Ischaemic stroke [Recovering/Resolving]
  - Epistaxis [Unknown]
  - Dysphagia [Not Recovered/Not Resolved]
  - Death [Fatal]
  - Escherichia urinary tract infection [Unknown]

NARRATIVE: CASE EVENT DATE: 201512
